FAERS Safety Report 15688726 (Version 1)
Quarter: 2018Q4

REPORT INFORMATION
  Report Type: Spontaneous
  Country: GB (occurrence: GB)
  Receive Date: 20181205
  Receipt Date: 20181205
  Transmission Date: 20190205
  Serious: Yes (Hospitalization)
  Sender: FDA-Public Use
  Company Number: GB-ACCORD-094660

PATIENT
  Age: 79 Year
  Sex: Female

DRUGS (7)
  1. BENDROFLUMETHIAZIDE [Suspect]
     Active Substance: BENDROFLUMETHIAZIDE
     Indication: PRODUCT USED FOR UNKNOWN INDICATION
     Dosage: IN THE MORNING
     Route: 048
     Dates: end: 20171125
  2. OMEPRAZOLE. [Concomitant]
     Active Substance: OMEPRAZOLE
  3. ENALAPRIL [Concomitant]
     Active Substance: ENALAPRIL
  4. SPIRONOLACTONE. [Concomitant]
     Active Substance: SPIRONOLACTONE
  5. DONEPEZIL/DONEPEZIL HYDROCHLORIDE [Concomitant]
  6. FELODIPINE. [Concomitant]
     Active Substance: FELODIPINE
  7. AMITRIPTYLINE [Suspect]
     Active Substance: AMITRIPTYLINE
     Indication: PRODUCT USED FOR UNKNOWN INDICATION
     Dosage: AT NIGHT
     Dates: end: 20171125

REACTIONS (2)
  - Orthostatic hypotension [Recovered/Resolved]
  - Hyponatraemia [Recovered/Resolved]
